FAERS Safety Report 5799629-8 (Version None)
Quarter: 2008Q3

REPORT INFORMATION
  Report Type: 
  Country: None (occurrence: None)
  Receive Date: 20080702
  Receipt Date: 20080702
  Transmission Date: 20090109
  Serious: Yes (Life-Threatening)
  Sender: FDA-Public Use
  Company Number: None

PATIENT
  Age: 75 Year
  Sex: Male

DRUGS (1)
  1. DIGITEK 0.125MG [Suspect]
     Dosage: 1 TABLET DAILY

REACTIONS (3)
  - LACRIMATION INCREASED [None]
  - VISION BLURRED [None]
  - VISUAL IMPAIRMENT [None]
